FAERS Safety Report 11750624 (Version 1)
Quarter: 2015Q4

REPORT INFORMATION
  Report Type: Spontaneous
  Country: US (occurrence: US)
  Receive Date: 20151118
  Receipt Date: 20151118
  Transmission Date: 20160304
  Serious: No
  Sender: FDA-Public Use
  Company Number: US-CTI_01793_2015

PATIENT
  Age: 3 Year
  Sex: Male

DRUGS (1)
  1. BETHKIS [Suspect]
     Active Substance: TOBRAMYCIN
     Indication: CYSTIC FIBROSIS
     Dosage: 300MG/4ML, BID
     Route: 055
     Dates: start: 20150930

REACTIONS (3)
  - Drug prescribing error [Not Recovered/Not Resolved]
  - Product use issue [Not Recovered/Not Resolved]
  - Drug administered to patient of inappropriate age [None]

NARRATIVE: CASE EVENT DATE: 20150930
